FAERS Safety Report 9454302 (Version 2)
Quarter: 2013Q3

REPORT INFORMATION
  Report Type: Spontaneous
  Country: JP (occurrence: JP)
  Receive Date: 20130812
  Receipt Date: 20130909
  Transmission Date: 20140515
  Serious: Yes (Other)
  Sender: FDA-Public Use
  Company Number: JP-GENZYME-THYM-1003969

PATIENT
  Age: 1 Year
  Sex: Female
  Weight: 7 kg

DRUGS (11)
  1. THYMOGLOBULINE [Suspect]
     Indication: LIVER TRANSPLANT REJECTION
     Dosage: 1.6 MG/KG, QD
     Route: 065
  2. TACROLIMUS [Suspect]
     Indication: IMMUNOSUPPRESSION
     Dosage: UNK
     Route: 065
     Dates: start: 20121024, end: 20121031
  3. MYCOPHENOLATE MOFETIL [Suspect]
     Indication: IMMUNOSUPPRESSION
     Dosage: UNK
     Route: 065
     Dates: start: 20121028
  4. DEXCHLORPHENIRAMINE [Concomitant]
     Indication: PRODUCT USED FOR UNKNOWN INDICATION
     Dosage: UNK
     Route: 065
     Dates: start: 20130522, end: 20130530
  5. ACETAMINOPHEN [Concomitant]
     Indication: PRODUCT USED FOR UNKNOWN INDICATION
     Dosage: UNK
     Route: 065
     Dates: start: 20130522, end: 20130530
  6. METHYLPREDNISOLONE [Concomitant]
     Indication: ADVERSE DRUG REACTION
     Dosage: UNK
     Route: 065
     Dates: start: 20121024
  7. METHYLPREDNISOLONE [Concomitant]
     Dosage: UNK (PULSE THERAPY)
     Route: 065
     Dates: start: 20121112, end: 20121114
  8. METHYLPREDNISOLONE [Concomitant]
     Dosage: UNK (PULSE THERAPY)
     Route: 065
     Dates: start: 20130305, end: 20130307
  9. METHYLPREDNISOLONE [Concomitant]
     Dosage: UNK (PULSE THERAPY)
     Route: 065
     Dates: start: 20130502, end: 20130504
  10. METHYLPREDNISOLONE [Concomitant]
     Dosage: (RECYCLE)UNK
     Route: 065
     Dates: start: 20130505, end: 20130523
  11. METHYLPREDNISOLONE [Concomitant]
     Dosage: 2.5 MG/KG, UNK (INJECTION)
     Route: 065
     Dates: start: 20130522, end: 20130530

REACTIONS (7)
  - Disseminated intravascular coagulation [Unknown]
  - Pancytopenia [Recovered/Resolved]
  - Cytomegalovirus viraemia [Recovered/Resolved]
  - C-reactive protein increased [Recovered/Resolved]
  - Infusion related reaction [Recovered/Resolved]
  - Serum sickness [Recovered/Resolved]
  - Serum sickness [Not Recovered/Not Resolved]
